FAERS Safety Report 13784189 (Version 2)
Quarter: 2017Q3

REPORT INFORMATION
  Report Type: Spontaneous
  Country: US (occurrence: US)
  Receive Date: 20170724
  Receipt Date: 20170821
  Transmission Date: 20171127
  Serious: Yes (Hospitalization)
  Sender: FDA-Public Use
  Company Number: US-ACTELION-A-NJ2017-157079

PATIENT
  Age: 47 Year
  Sex: Female

DRUGS (8)
  1. ADEMPAS [Concomitant]
     Active Substance: RIOCIGUAT
  2. OMEPRAZOLE. [Concomitant]
     Active Substance: OMEPRAZOLE
  3. BUSPIRONE HCL [Concomitant]
     Active Substance: BUSPIRONE HYDROCHLORIDE
  4. SPIRONOLACTONE. [Concomitant]
     Active Substance: SPIRONOLACTONE
  5. VELETRI [Suspect]
     Active Substance: EPOPROSTENOL
     Indication: PULMONARY ARTERIAL HYPERTENSION
     Dosage: 26 NG/KG, PER MIN
     Route: 042
     Dates: start: 20170401
  6. ZOLPIDEM [Concomitant]
     Active Substance: ZOLPIDEM\ZOLPIDEM TARTRATE
  7. CLONAZEPAM. [Concomitant]
     Active Substance: CLONAZEPAM
  8. LETAIRIS [Concomitant]
     Active Substance: AMBRISENTAN

REACTIONS (5)
  - Headache [Unknown]
  - Condition aggravated [Recovering/Resolving]
  - Fluid retention [Recovering/Resolving]
  - Pain in extremity [Not Recovered/Not Resolved]
  - Malaise [Unknown]

NARRATIVE: CASE EVENT DATE: 20170401
